FAERS Safety Report 9627988 (Version 2)
Quarter: 2013Q4

REPORT INFORMATION
  Report Type: Spontaneous
  Country: HU (occurrence: HU)
  Receive Date: 20131016
  Receipt Date: 20131016
  Transmission Date: 20140711
  Serious: Yes (Other)
  Sender: FDA-Public Use
  Company Number: HU-PFIZER INC-2012004175

PATIENT
  Age: 7 Year
  Sex: Female

DRUGS (5)
  1. ENBREL [Suspect]
     Indication: JUVENILE IDIOPATHIC ARTHRITIS
  2. SOLU-MEDROL [Suspect]
     Indication: JUVENILE IDIOPATHIC ARTHRITIS
     Dosage: 250 MG FOR 4 DAYS
     Route: 041
  3. METHYLPREDNISOLONE [Suspect]
     Dosage: 5 MG, 1X/DAY
     Route: 048
  4. METHOTREXATE SODIUM [Suspect]
     Dosage: 10 MG, WEEKLY
  5. ACTEMRA [Suspect]

REACTIONS (9)
  - Gastroenteritis salmonella [Unknown]
  - Drug ineffective [Unknown]
  - Vasculitis [Unknown]
  - Rash [Unknown]
  - Rash erythematous [Unknown]
  - Impetigo [Unknown]
  - Rash pustular [Unknown]
  - Infestation [Unknown]
  - Rosacea [Unknown]
